FAERS Safety Report 6756021-7 (Version None)
Quarter: 2010Q2

REPORT INFORMATION
  Report Type: 
  Country: None (occurrence: None)
  Receive Date: 20100604
  Receipt Date: 20100602
  Transmission Date: 20101027
  Serious: Yes (Hospitalization)
  Sender: FDA-Public Use
  Company Number: AU-B.I. PHARMACEUTICALS,INC./RIDGEFIELD-2010-AU-00446AU

PATIENT
  Sex: Female

DRUGS (3)
  1. MICARDIS HCT [Suspect]
  2. SOMAC [Concomitant]
  3. SPIRONOLACTONE [Concomitant]

REACTIONS (3)
  - CHOKING SENSATION [None]
  - COUGH [None]
  - VOCAL CORD PARALYSIS [None]
